FAERS Safety Report 4374717-1 (Version None)
Quarter: 2004Q2

REPORT INFORMATION
  Report Type: 
  Country: None (occurrence: None)
  Receive Date: 20040602
  Receipt Date: 20040308
  Transmission Date: 20050107
  Serious: No
  Sender: FDA-Public Use
  Company Number: 200324731BWH

PATIENT
  Age: 80 Year
  Sex: Male

DRUGS (8)
  1. LEVITRA [Suspect]
     Indication: ERECTILE DYSFUNCTION
     Dosage: 10 MG, QD, ORAL : 20 MG, ONCE, ORAL
     Route: 048
     Dates: start: 20030923
  2. LEVITRA [Suspect]
     Indication: ERECTILE DYSFUNCTION
     Dosage: 10 MG, QD, ORAL : 20 MG, ONCE, ORAL
     Route: 048
     Dates: start: 20030924
  3. EFFEXOR [Concomitant]
  4. CELEBREX [Concomitant]
  5. HORMONE FOR INCONTINENCE [Concomitant]
  6. CARDURA [Concomitant]
  7. SYNTHROID [Concomitant]
  8. DDAP [Concomitant]

REACTIONS (1)
  - ERECTILE DYSFUNCTION [None]
